FAERS Safety Report 4596683-6 (Version None)
Quarter: 2005Q1

REPORT INFORMATION
  Report Type: 
  Country: None (occurrence: None)
  Receive Date: 20050228
  Receipt Date: 20050215
  Transmission Date: 20050727
  Serious: Yes (Hospitalization)
  Sender: FDA-Public Use
  Company Number: 2005030989

PATIENT
  Age: 54 Year
  Sex: Female
  Weight: 111.1313 kg

DRUGS (3)
  1. LIPITOR [Suspect]
     Indication: BLOOD CHOLESTEROL INCREASED
     Dosage: 1 IN 1 D, ORAL
     Route: 048
     Dates: start: 20000101, end: 20040801
  2. LANSOPRAZOLE [Suspect]
     Indication: GASTROOESOPHAGEAL REFLUX DISEASE
     Dosage: 30 MG (1 IN 1 D), ORAL
     Route: 048
     Dates: start: 20000101
  3. VALSARTAN (VALSARTAN) [Suspect]
     Indication: HYPERTENSION
     Dosage: 80 MG (1 IN 1 D), ORAL
     Route: 048
     Dates: start: 20040101

REACTIONS (6)
  - BLOOD CHOLESTEROL INCREASED [None]
  - CHOLELITHIASIS [None]
  - GALLBLADDER PAIN [None]
  - HALITOSIS [None]
  - HEPATIC ENZYME INCREASED [None]
  - HYPERTENSION [None]
